FAERS Safety Report 4592855-5 (Version None)
Quarter: 2005Q1

REPORT INFORMATION
  Report Type: 
  Country: None (occurrence: None)
  Receive Date: 20050228
  Receipt Date: 20050208
  Transmission Date: 20050727
  Serious: Yes (Hospitalization)
  Sender: FDA-Public Use
  Company Number: US-ROCHE-395123

PATIENT
  Age: 44 Year
  Sex: Male
  Weight: 95.7 kg

DRUGS (3)
  1. PEGASYS [Suspect]
     Indication: HEPATITIS C
     Route: 050
     Dates: start: 20041029, end: 20050127
  2. PEGASYS [Suspect]
     Route: 050
     Dates: start: 20050127
  3. COPEGUS [Suspect]
     Indication: HEPATITIS C
     Route: 048
     Dates: start: 20041029

REACTIONS (13)
  - AMMONIA INCREASED [None]
  - ASCITES [None]
  - CONTUSION [None]
  - COUGH [None]
  - DYSPNOEA [None]
  - FATIGUE [None]
  - GASTRIC VARICES [None]
  - HAEMOGLOBIN DECREASED [None]
  - OEDEMA PERIPHERAL [None]
  - PLATELET COUNT DECREASED [None]
  - RED BLOOD CELL COUNT DECREASED [None]
  - WEIGHT INCREASED [None]
  - WHITE BLOOD CELL COUNT DECREASED [None]
